FAERS Safety Report 18543664 (Version 1)
Quarter: 2020Q4

REPORT INFORMATION
  Report Type: Other
  Country: GB (occurrence: GB)
  Receive Date: 20201125
  Receipt Date: 20201125
  Transmission Date: 20210114
  Serious: No
  Sender: FDA-Public Use
  Company Number: GB-LUPIN PHARMACEUTICALS INC.-2020-04860

PATIENT
  Age: 79 Year
  Sex: Female
  Weight: 57 kg

DRUGS (7)
  1. NITROFURANTOIN. [Concomitant]
     Active Substance: NITROFURANTOIN
     Indication: ILL-DEFINED DISORDER
     Dosage: UNK, BID (TAKE ONE TWICE DAILY)
     Route: 065
     Dates: start: 20200721, end: 20200728
  2. OMEPRAZOLE. [Concomitant]
     Active Substance: OMEPRAZOLE
     Indication: ILL-DEFINED DISORDER
     Dosage: UNK, QD (TAKE ONE DAILY)
     Route: 065
     Dates: start: 20200714
  3. HYPROMELLOSE [Concomitant]
     Active Substance: HYPROMELLOSES
     Indication: ILL-DEFINED DISORDER
     Dosage: 1 DROP, PRN
     Route: 065
     Dates: start: 20191129
  4. LEVOTHYROXINE. [Concomitant]
     Active Substance: LEVOTHYROXINE
     Indication: ILL-DEFINED DISORDER
     Dosage: UNK UNK, QD (ONE TO BE TAKEN DAILY)
     Route: 065
     Dates: start: 20191129
  5. CYCLIZINE [Concomitant]
     Active Substance: CYCLIZINE
     Indication: ILL-DEFINED DISORDER
     Dosage: UNK, PRN (1 TO BE TAKEN THREE TIMES DAILY WHEN REQUIRED)
     Route: 065
     Dates: start: 20200720, end: 20200721
  6. AMOROLFINE [Concomitant]
     Active Substance: AMOROLFINE
     Indication: ILL-DEFINED DISORDER
     Dosage: UNK (APPLY ONCE WEEKLY AS DIRECTED)
     Route: 065
     Dates: start: 20200506, end: 20200605
  7. SERTRALINE [Suspect]
     Active Substance: SERTRALINE HYDROCHLORIDE
     Indication: PRODUCT USED FOR UNKNOWN INDICATION
     Dosage: UNK (USE AS DIRECTED)
     Route: 065
     Dates: start: 20200701

REACTIONS (2)
  - Balance disorder [Recovered/Resolved]
  - Dizziness [Recovered/Resolved]

NARRATIVE: CASE EVENT DATE: 20200730
